FAERS Safety Report 9204771 (Version 1)
Quarter: 2013Q2

REPORT INFORMATION
  Report Type: Spontaneous
  Country: US (occurrence: US)
  Receive Date: 20130402
  Receipt Date: 20130402
  Transmission Date: 20140414
  Serious: No
  Sender: FDA-Public Use
  Company Number: US-VIIV HEALTHCARE LIMITED-A1018157A

PATIENT
  Sex: Male

DRUGS (1)
  1. SELZENTRY [Suspect]
     Indication: HIV INFECTION
     Route: 065

REACTIONS (1)
  - Neoplasm [Unknown]
